FAERS Safety Report 5411788-5 (Version None)
Quarter: 2007Q3

REPORT INFORMATION
  Report Type: 
  Country: None (occurrence: None)
  Receive Date: 20070813
  Receipt Date: 20070807
  Transmission Date: 20080115
  Serious: Yes (Other)
  Sender: FDA-Public Use
  Company Number: PHNU2007SI02781

PATIENT
  Age: 51 Year
  Sex: Male
  Weight: 80 kg

DRUGS (2)
  1. LAMISIL [Suspect]
     Indication: NAIL TINEA
     Dosage: 250 MG/D
     Route: 048
     Dates: start: 20070530, end: 20070602
  2. PERINDOPRIL ERBUMINE [Concomitant]

REACTIONS (4)
  - ARTHRALGIA [None]
  - ERYTHEMA NODOSUM [None]
  - JOINT SWELLING [None]
  - SUBCUTANEOUS NODULE [None]
